FAERS Safety Report 6348344-0 (Version None)
Quarter: 2009Q3

REPORT INFORMATION
  Report Type: 
  Country: None (occurrence: None)
  Receive Date: 20090908
  Receipt Date: 20090825
  Transmission Date: 20100115
  Serious: Yes (Other)
  Sender: FDA-Public Use
  Company Number: 2009AP003478

PATIENT
  Age: 46 Year
  Sex: Female

DRUGS (2)
  1. TOPIRAMATE            TABLETS (200 MG) [Suspect]
     Indication: MIGRAINE PROPHYLAXIS
     Dosage: 200 MG, QD; PO
     Route: 048
     Dates: start: 20090704, end: 20090801
  2. TOPIRAMATE [Concomitant]

REACTIONS (2)
  - ANORGASMIA [None]
  - DRUG INEFFECTIVE [None]
